FAERS Safety Report 15805719 (Version 1)
Quarter: 2019Q1

REPORT INFORMATION
  Report Type: Spontaneous
  Country: US (occurrence: US)
  Receive Date: 20190110
  Receipt Date: 20190110
  Transmission Date: 20190417
  Serious: No
  Sender: FDA-Public Use
  Company Number: US-SA-2019SA005350

PATIENT
  Age: 46 Year
  Sex: Male

DRUGS (1)
  1. LEMTRADA [Suspect]
     Active Substance: ALEMTUZUMAB
     Dosage: UNK
     Route: 041
     Dates: start: 20181001

REACTIONS (9)
  - Pain [Unknown]
  - Muscular weakness [Unknown]
  - Blood pressure increased [Unknown]
  - Heart rate increased [Unknown]
  - Dizziness [Unknown]
  - Chills [Unknown]
  - Musculoskeletal disorder [Unknown]
  - Vitreous floaters [Unknown]
  - Vision blurred [Unknown]

NARRATIVE: CASE EVENT DATE: 20181003
